FAERS Safety Report 8838820 (Version 1)
Quarter: 2012Q4

REPORT INFORMATION
  Report Type: 
  Country: NL (occurrence: NL)
  Receive Date: 20121013
  Receipt Date: 20121013
  Transmission Date: 20130627
  Serious: Yes (Other)
  Sender: FDA-Public Use
  Company Number: NL-ROXANE LABORATORIES, INC.-2012-RO-01986RO

PATIENT
  Age: 50 Year
  Sex: Female

DRUGS (3)
  1. CYCLOPHOSPHAMIDE TABLETS USP [Suspect]
     Indication: BREAST CANCER
  2. FLUOROURACIL [Suspect]
     Indication: BREAST CANCER
  3. EPIRUBICIN [Suspect]
     Indication: BREAST CANCER

REACTIONS (1)
  - Metal poisoning [Unknown]
